FAERS Safety Report 15960133 (Version 1)
Quarter: 2019Q1

REPORT INFORMATION
  Report Type: Spontaneous
  Country: US (occurrence: US)
  Receive Date: 20190214
  Receipt Date: 20190214
  Transmission Date: 20190417
  Serious: No
  Sender: FDA-Public Use
  Company Number: US-ROCHE-2156857

PATIENT
  Sex: Male
  Weight: 80.81 kg

DRUGS (2)
  1. ERIVEDGE [Suspect]
     Active Substance: VISMODEGIB
     Indication: CONGENITAL ANOMALY
     Dosage: BY MOUTH
     Route: 048
     Dates: start: 20180627
  2. OMNITROPE [Concomitant]
     Active Substance: SOMATROPIN
     Route: 058
     Dates: start: 20180626

REACTIONS (3)
  - Off label use [Unknown]
  - Intentional product use issue [Unknown]
  - No adverse event [Unknown]
